FAERS Safety Report 15976935 (Version 2)
Quarter: 2019Q2

REPORT INFORMATION
  Report Type: Spontaneous
  Country: FR (occurrence: FR)
  Receive Date: 20190218
  Receipt Date: 20190402
  Transmission Date: 20190711
  Serious: Yes (Hospitalization, Other)
  Sender: FDA-Public Use
  Company Number: FR-MYLANLABS-2019M1013600

PATIENT
  Age: 62 Year
  Sex: Female

DRUGS (6)
  1. MABTHERA [Suspect]
     Active Substance: RITUXIMAB
     Indication: MARGINAL ZONE LYMPHOMA
     Dosage: NON RENSEIGNEE
     Route: 042
     Dates: start: 20180719, end: 20180719
  2. DEXCHLORPHENIRAMINE MALEATE. [Suspect]
     Active Substance: DEXCHLORPHENIRAMINE MALEATE
     Indication: ALLERGY PROPHYLAXIS
     Dosage: NON RENSEIGNEE
     Route: 048
     Dates: start: 20180719, end: 20180720
  3. OXALIPLATIN. [Suspect]
     Active Substance: OXALIPLATIN
     Indication: MARGINAL ZONE LYMPHOMA
     Dosage: NON RENSEIGNEE
     Route: 042
     Dates: start: 20180719, end: 20180719
  4. EMEND [Suspect]
     Active Substance: APREPITANT
     Indication: VOMITING
     Dosage: NON RENSEIGNEE
     Route: 048
     Dates: start: 20180719, end: 20180720
  5. CYTARABINE. [Suspect]
     Active Substance: CYTARABINE
     Indication: MARGINAL ZONE LYMPHOMA
     Dosage: 6 GRAM
     Dates: start: 20180720, end: 20180720
  6. ZOPHREN                            /00955302/ [Suspect]
     Active Substance: ONDANSETRON
     Indication: VOMITING
     Dosage: 8 MILLIGRAM, QD
     Route: 048
     Dates: start: 20180719, end: 20180720

REACTIONS (1)
  - Hepatocellular injury [Recovering/Resolving]

NARRATIVE: CASE EVENT DATE: 20180723
